FAERS Safety Report 5274995-0 (Version None)
Quarter: 2007Q1

REPORT INFORMATION
  Report Type: 
  Country: None (occurrence: None)
  Receive Date: 20070325
  Receipt Date: 20070321
  Transmission Date: 20070707
  Serious: Yes (Hospitalization)
  Sender: FDA-Public Use
  Company Number: MX-ABBOTT-07P-107-0362770-00

PATIENT
  Sex: Male
  Weight: 53.8 kg

DRUGS (5)
  1. KALETRA [Suspect]
     Indication: HIV TEST POSITIVE
     Route: 048
     Dates: start: 20060527, end: 20060613
  2. EFAVIRENZ [Concomitant]
     Indication: HIV INFECTION
     Route: 048
     Dates: start: 20060613
  3. LAMIVUDINE + ZIDOVUDINE [Concomitant]
     Indication: HIV INFECTION
     Route: 048
     Dates: start: 20060613
  4. OMEPRAZOLE [Concomitant]
     Indication: PROPHYLAXIS AGAINST GASTROINTESTINAL ULCER
     Route: 042
     Dates: start: 20060613, end: 20060627
  5. BACTRIM [Concomitant]
     Indication: PNEUMOCYSTIS JIROVECI PNEUMONIA
     Route: 048
     Dates: start: 20060613, end: 20060627

REACTIONS (3)
  - LYMPHADENITIS [None]
  - LYMPHADENOPATHY [None]
  - PANCYTOPENIA [None]
